FAERS Safety Report 7919122-3 (Version None)
Quarter: 2011Q4

REPORT INFORMATION
  Report Type: 
  Country: None (occurrence: None)
  Receive Date: 20111116
  Receipt Date: 20111028
  Transmission Date: 20120403
  Serious: Yes (Other)
  Sender: FDA-Public Use
  Company Number: PHEH2009US17987

PATIENT
  Sex: Male

DRUGS (40)
  1. LEVAQUIN [Concomitant]
  2. GUAIFENESIN [Concomitant]
  3. FENTANYL [Concomitant]
  4. MORPHINE [Concomitant]
  5. MARINOL [Concomitant]
  6. DURAGESIC-100 [Concomitant]
  7. ADVAIR DISKUS 100/50 [Concomitant]
  8. VANCOMYCIN [Concomitant]
  9. AMBIEN [Concomitant]
  10. TYKERB [Concomitant]
  11. GABAPENTIN [Concomitant]
  12. MORPHINE SULFATE [Concomitant]
  13. ACETAMINOPHEN [Concomitant]
  14. NEURONTIN [Concomitant]
  15. ZOFRAN [Concomitant]
  16. ZETIA [Concomitant]
  17. ZOMETA [Suspect]
  18. MS CONTIN [Concomitant]
  19. COMBIVENT [Concomitant]
  20. DECADRON [Concomitant]
  21. REGLAN [Concomitant]
  22. SENOKOT                                 /UNK/ [Concomitant]
  23. LAPATINIB [Concomitant]
  24. PREDNISONE TAB [Concomitant]
  25. XANAX [Concomitant]
  26. XELODA [Suspect]
     Indication: BREAST CANCER METASTATIC
  27. SPIRIVA [Concomitant]
  28. PROTONIX [Concomitant]
  29. HYDROCODONE BITARTRATE [Concomitant]
  30. CRESTOR [Concomitant]
  31. ATIVAN [Concomitant]
  32. ARIXTRA [Concomitant]
  33. CHANTIX [Concomitant]
  34. MEGACE [Concomitant]
  35. PREVACID [Concomitant]
  36. CYMBALTA [Concomitant]
  37. XOPENEX [Concomitant]
  38. MIRALAX [Concomitant]
  39. COUMADIN [Concomitant]
  40. CIPRO [Concomitant]

REACTIONS (10)
  - PAIN [None]
  - EMOTIONAL DISTRESS [None]
  - ANXIETY [None]
  - INJURY [None]
  - DEFORMITY [None]
  - SPINAL HAEMANGIOMA [None]
  - INFECTION [None]
  - OSTEONECROSIS OF JAW [None]
  - PHYSICAL DISABILITY [None]
  - OVERDOSE [None]
